FAERS Safety Report 18124327 (Version 2)
Quarter: 2020Q3

REPORT INFORMATION
  Report Type: Spontaneous
  Country: ES (occurrence: ES)
  Receive Date: 20200807
  Receipt Date: 20200825
  Transmission Date: 20201103
  Serious: Yes (Hospitalization, Other)
  Sender: FDA-Public Use
  Company Number: ES-TEVA-2018-ES-876597

PATIENT
  Age: 28 Year
  Sex: Female

DRUGS (3)
  1. AZITHROMYCIN ANHYDROUS. [Concomitant]
     Active Substance: AZITHROMYCIN ANHYDROUS
     Indication: PRIMARY CILIARY DYSKINESIA
     Dosage: UNK
     Route: 065
  2. LEVOFLOXACIN. [Suspect]
     Active Substance: LEVOFLOXACIN
     Indication: RESPIRATORY TRACT INFECTION
     Dosage: 1000 MILLIGRAM DAILY; EVERY 12H F 0.1 TO 1 PERCENT
     Route: 048
     Dates: start: 20171211, end: 20171213
  3. LEVOFLOXACIN. [Suspect]
     Active Substance: LEVOFLOXACIN
     Dosage: UNK, 48 HOURS BEFORE
     Route: 065

REACTIONS (4)
  - Amylase increased [Recovered/Resolved]
  - Abdominal pain upper [Recovered/Resolved]
  - Pancreatitis acute [Recovered/Resolved]
  - Lipase increased [Recovered/Resolved]

NARRATIVE: CASE EVENT DATE: 20171212
